FAERS Safety Report 23134778 (Version 3)
Quarter: 2024Q1

REPORT INFORMATION
  Report Type: Report from Study
  Country: US (occurrence: US)
  Receive Date: 20231101
  Receipt Date: 20240326
  Transmission Date: 20240410
  Serious: Yes (Hospitalization, Other)
  Sender: FDA-Public Use
  Company Number: US-ARGENX-2023-ARGX-US003213

PATIENT

DRUGS (2)
  1. VYVGART [Suspect]
     Active Substance: EFGARTIGIMOD ALFA-FCAB
     Indication: Myasthenia gravis
     Dosage: 10 MG/KG
     Route: 042
     Dates: start: 20230228, end: 20240117
  2. VYVGART [Suspect]
     Active Substance: EFGARTIGIMOD ALFA-FCAB
     Dosage: 10 MG/KG
     Route: 042
     Dates: start: 20240201

REACTIONS (15)
  - Myasthenia gravis [Unknown]
  - Myocardial necrosis marker increased [Unknown]
  - Chronic kidney disease [Unknown]
  - Choking [Unknown]
  - Sunburn [Unknown]
  - Chronic obstructive pulmonary disease [Unknown]
  - Jaw disorder [Unknown]
  - Eyelid ptosis [Unknown]
  - Therapy interrupted [Unknown]
  - Feeling abnormal [Unknown]
  - Blepharospasm [Unknown]
  - Fatigue [Not Recovered/Not Resolved]
  - Dyspnoea [Unknown]
  - Dyspnoea [Unknown]
  - Upper respiratory tract infection [Unknown]

NARRATIVE: CASE EVENT DATE: 20230101
